FAERS Safety Report 8577248-8 (Version None)
Quarter: 2012Q3

REPORT INFORMATION
  Report Type: 
  Country: None (occurrence: None)
  Receive Date: 20120807
  Receipt Date: 20120730
  Transmission Date: 20120928
  Serious: Yes (Life-Threatening, Hospitalization, Other)
  Sender: FDA-Public Use
  Company Number: JP-VERTEX PHARMACEUTICALS INC.-AE-2012-004723

PATIENT
  Age: 66 Year
  Sex: Female

DRUGS (11)
  1. ACETAMINOPHEN [Concomitant]
     Route: 048
     Dates: start: 20120207
  2. ALDACTONE [Concomitant]
     Route: 048
  3. LASIX [Concomitant]
     Route: 048
  4. REBETOL [Concomitant]
     Route: 048
     Dates: start: 20120314, end: 20120327
  5. LEDOLPER [Concomitant]
     Route: 048
     Dates: start: 20120207
  6. TELAVIC (TELAPREVIR) [Suspect]
     Indication: HEPATITIS C
     Route: 048
     Dates: start: 20120207, end: 20120417
  7. PEGINTERFERON ALFA-2B [Concomitant]
     Indication: HEPATITIS C
     Route: 058
     Dates: start: 20120207, end: 20120417
  8. TELAVIC (TELAPREVIR) [Suspect]
     Route: 048
     Dates: start: 20120418, end: 20120419
  9. REBETOL [Concomitant]
     Indication: HEPATITIS C
     Route: 048
     Dates: start: 20120207, end: 20120313
  10. REBETOL [Concomitant]
     Route: 048
     Dates: start: 20120328, end: 20120419
  11. RABEPRAZOLE SODIUM [Concomitant]
     Route: 048
     Dates: start: 20120525

REACTIONS (3)
  - MALAISE [None]
  - IDIOPATHIC THROMBOCYTOPENIC PURPURA [None]
  - SKIN DISORDER [None]
